FAERS Safety Report 4382151-3 (Version None)
Quarter: 2004Q3

REPORT INFORMATION
  Report Type: 
  Country: None (occurrence: None)
  Receive Date: 20040617
  Receipt Date: 20040525
  Transmission Date: 20050211
  Serious: Yes (Hospitalization)
  Sender: FDA-Public Use
  Company Number: TAP2004Q00555

PATIENT
  Sex: Male

DRUGS (1)
  1. NAPRAPAC 375 (COPACKAGED) [Suspect]
     Indication: PROPHYLAXIS
     Dosage: CARD
     Dates: start: 20040317, end: 20040407

REACTIONS (2)
  - GASTRITIS EROSIVE [None]
  - MELAENA [None]
